FAERS Safety Report 8139742-3 (Version None)
Quarter: 2012Q1

REPORT INFORMATION
  Report Type: 
  Country: None (occurrence: None)
  Receive Date: 20120215
  Receipt Date: 20120211
  Transmission Date: 20120608
  Serious: Yes (Hospitalization)
  Sender: FDA-Public Use
  Company Number: PHEH2011US02006

PATIENT
  Sex: Male
  Weight: 26.58 kg

DRUGS (2)
  1. EXJADE [Suspect]
     Indication: IRON OVERLOAD
  2. EXJADE [Suspect]
     Indication: SICKLE CELL ANAEMIA
     Dosage: 750 MG, QD
     Route: 048
     Dates: start: 20080828

REACTIONS (6)
  - CONFUSIONAL STATE [None]
  - CEREBROVASCULAR ACCIDENT [None]
  - DYSPHEMIA [None]
  - ARTHRALGIA [None]
  - MOVEMENT DISORDER [None]
  - VOMITING [None]
